FAERS Safety Report 25584772 (Version 1)
Quarter: 2025Q3

REPORT INFORMATION
  Report Type: Spontaneous
  Country: US (occurrence: US)
  Receive Date: 20250721
  Receipt Date: 20250721
  Transmission Date: 20251021
  Serious: No
  Sender: ROCHE
  Company Number: US-ROCHE-10000318428

PATIENT
  Sex: Male
  Weight: 68.04 kg

DRUGS (9)
  1. ACTEMRA ACTPEN [Suspect]
     Active Substance: TOCILIZUMAB
     Indication: Giant cell arteritis
     Route: 058
     Dates: start: 20250413
  2. ATORVASTATIN [Concomitant]
     Active Substance: ATORVASTATIN
  3. FINASTERIDE [Concomitant]
     Active Substance: FINASTERIDE
  4. TERAZOSIN [Concomitant]
     Active Substance: TERAZOSIN HYDROCHLORIDE
  5. PROBIOTIC TBE [Concomitant]
  6. FLAXSEED [Concomitant]
     Active Substance: FLAX SEED
  7. KETOCONAZOLE SHA [Concomitant]
  8. MINOCYCLINE CAP [Concomitant]
  9. VITAMINS [Concomitant]
     Active Substance: VITAMINS

REACTIONS (3)
  - Device issue [Unknown]
  - Headache [Not Recovered/Not Resolved]
  - Product preparation error [Unknown]
